FAERS Safety Report 7553849-0 (Version None)
Quarter: 2011Q2

REPORT INFORMATION
  Report Type: 
  Country: None (occurrence: None)
  Receive Date: 20110617
  Receipt Date: 20110613
  Transmission Date: 20111010
  Serious: Yes (Hospitalization)
  Sender: FDA-Public Use
  Company Number: CA-BRISTOL-MYERS SQUIBB COMPANY-14248470

PATIENT
  Age: 66 Year
  Sex: Female

DRUGS (14)
  1. ACTONEL [Concomitant]
  2. ATROVENT [Concomitant]
  3. OXYCONTIN [Concomitant]
  4. MULTI-VITAMINS [Concomitant]
  5. METFORMIN HCL [Concomitant]
  6. PREDNISONE [Concomitant]
  7. AMITRIPTYLINE HYDROCHLORIDE [Concomitant]
  8. RABEPRAZOLE SODIUM [Concomitant]
  9. CENESTIN [Concomitant]
  10. ATIVAN [Concomitant]
  11. FOLIC ACID [Concomitant]
  12. ORENCIA [Suspect]
     Indication: RHEUMATOID ARTHRITIS
     Dosage: 20OC,9DE08,6JA,3FE,3,31MA9,1:26MY,,20AU,23SE,19OC,NO,16DE9,10DE10,25MAY11.INF:34
     Route: 042
     Dates: start: 20080626
  13. CALCIUM + VITAMIN D [Concomitant]
  14. VENTOLIN HFA [Concomitant]

REACTIONS (11)
  - FATIGUE [None]
  - MALAISE [None]
  - PYREXIA [None]
  - PAIN [None]
  - INSOMNIA [None]
  - HEART RATE INCREASED [None]
  - ASTHENIA [None]
  - SEPSIS [None]
  - NAUSEA [None]
  - RHEUMATOID ARTHRITIS [None]
  - NASOPHARYNGITIS [None]
